FAERS Safety Report 16161004 (Version 1)
Quarter: 2019Q2

REPORT INFORMATION
  Report Type: Spontaneous
  Country: FR (occurrence: FR)
  Receive Date: 20190405
  Receipt Date: 20190405
  Transmission Date: 20190711
  Serious: Yes (Hospitalization)
  Sender: FDA-Public Use
  Company Number: FR-SUN PHARMACEUTICAL INDUSTRIES LTD-2019RR-204206

PATIENT
  Age: 25 Year
  Sex: Male

DRUGS (5)
  1. TERCIAN 100 MG, COMPRIME PELLICULE SECABLE [Suspect]
     Active Substance: CYAMEMAZINE
     Indication: POISONING DELIBERATE
     Dosage: 1 GRAM, UNK
     Route: 048
     Dates: start: 20190221, end: 20190221
  2. THERALENE 5 MG, COMPRIME PELLICULE SECABLE [Suspect]
     Active Substance: TRIMEPRAZINE
     Indication: POISONING DELIBERATE
     Dosage: 70 MILLIGRAM, UNK
     Route: 048
     Dates: start: 20190221, end: 20190221
  3. PARACETAMOL [Suspect]
     Active Substance: ACETAMINOPHEN
     Indication: POISONING DELIBERATE
     Dosage: 2.5 GRAM IN TOTAL
     Route: 048
     Dates: start: 20190221, end: 20190221
  4. PAROXETINE ACTAVIS 20 MG, COMPRIME PELLICULE SECABLE [Suspect]
     Active Substance: PAROXETINE HYDROCHLORIDE
     Indication: POISONING DELIBERATE
     Dosage: 20 MILLIGRAM IN TOTAL
     Route: 048
     Dates: start: 20190221, end: 20190221
  5. ALPRAZOLAM ALTER 0,25 MG, COMPRIME SECABLE [Suspect]
     Active Substance: ALPRAZOLAM
     Indication: POISONING DELIBERATE
     Dosage: 2 MILLIGRAM IN TOTAL
     Route: 048
     Dates: start: 20190221, end: 20190221

REACTIONS (3)
  - Hypotension [Not Recovered/Not Resolved]
  - Miosis [Not Recovered/Not Resolved]
  - Coma [Not Recovered/Not Resolved]

NARRATIVE: CASE EVENT DATE: 20190221
